FAERS Safety Report 11558790 (Version 1)
Quarter: 2015Q3

REPORT INFORMATION
  Report Type: Spontaneous
  Country: CH (occurrence: TZ)
  Receive Date: 20150928
  Receipt Date: 20150928
  Transmission Date: 20151125
  Serious: Yes (Death, Hospitalization)
  Sender: FDA-Public Use
  Company Number: CH-SA-2015SA146488

PATIENT
  Age: 9 Year
  Sex: Male

DRUGS (3)
  1. RIFAMPICIN/PYRAZINAMIDE/ISONIAZID/ETHAMBUTOL [Suspect]
     Active Substance: ETHAMBUTOL\ISONIAZID\PYRAZINAMIDE\RIFAMYCIN
     Indication: TUBERCULOSIS
     Dosage: RIFAMPICIN 150MG, ISONIAZID 75MG, PYRAZINAMIDE 400MG, ETHAMBUTOL 275MG
     Route: 065
     Dates: start: 201305, end: 201306
  2. RIFAMPICIN [Suspect]
     Active Substance: RIFAMPIN
     Indication: TUBERCULOSIS
     Dosage: 1 TABLET
     Route: 065
     Dates: start: 201307
  3. ISONIAZID. [Suspect]
     Active Substance: ISONIAZID
     Indication: TUBERCULOSIS
     Route: 065
     Dates: start: 201307

REACTIONS (19)
  - Incorrect dose administered [Unknown]
  - Fatigue [Fatal]
  - Hemiplegia [Fatal]
  - General physical health deterioration [Fatal]
  - Cachexia [Fatal]
  - CSF glucose abnormal [Fatal]
  - Oral candidiasis [None]
  - Central nervous system lymphoma [None]
  - CSF protein abnormal [Fatal]
  - CSF white blood cell count positive [Fatal]
  - Meningitis tuberculous [Fatal]
  - Weight decreased [Fatal]
  - Malnutrition [Fatal]
  - Malaise [Fatal]
  - Lymphadenitis [Unknown]
  - Cerebral toxoplasmosis [None]
  - Cerebral infarction [None]
  - Drug resistance [Fatal]
  - Haemoglobin decreased [None]

NARRATIVE: CASE EVENT DATE: 201307
